FAERS Safety Report 14394321 (Version 1)
Quarter: 2018Q1

REPORT INFORMATION
  Report Type: Spontaneous
  Country: US (occurrence: US)
  Receive Date: 20180116
  Receipt Date: 20180116
  Transmission Date: 20180509
  Serious: No
  Sender: FDA-Public Use
  Company Number: US-REGENERON PHARMACEUTICALS, INC.-2017-21103

PATIENT

DRUGS (2)
  1. EYLEA [Suspect]
     Active Substance: AFLIBERCEPT
     Dosage: 2 MG, EVERY 8 TO 10 WEEKS, LAST DOSE
     Route: 031
     Dates: start: 20170823, end: 20170823
  2. EYLEA [Suspect]
     Active Substance: AFLIBERCEPT
     Indication: RETINAL VEIN OCCLUSION
     Dosage: 2 MG, EVERY 8 TO 10 WEEKS, RIGHT EYE
     Route: 031
     Dates: start: 2015

REACTIONS (1)
  - Iritis [Recovered/Resolved]

NARRATIVE: CASE EVENT DATE: 20170824
